FAERS Safety Report 7780753-5 (Version None)
Quarter: 2011Q3

REPORT INFORMATION
  Report Type: 
  Country: None (occurrence: None)
  Receive Date: 20110927
  Receipt Date: 20110810
  Transmission Date: 20111222
  Serious: No
  Sender: FDA-Public Use
  Company Number: US-BRISTOL-MYERS SQUIBB COMPANY-15962038

PATIENT
  Age: 89 Year
  Sex: Female

DRUGS (1)
  1. AVAPRO [Suspect]
     Dosage: DOSE REDUCED TO 75 MG/DAY ABOUT A YEAR AGO,SPLITTING 150 MG TABS IN HALF,SEVERAL BOTTLES 150MG TABS

REACTIONS (3)
  - DYSPNOEA EXERTIONAL [None]
  - MEDICATION ERROR [None]
  - FATIGUE [None]
